FAERS Safety Report 12503906 (Version 1)
Quarter: 2016Q2

REPORT INFORMATION
  Report Type: Spontaneous
  Country: FR (occurrence: FR)
  Receive Date: 20160628
  Receipt Date: 20160628
  Transmission Date: 20160815
  Serious: Yes (Hospitalization, Other)
  Sender: FDA-Public Use
  Company Number: FR-PFIZER INC-2016318937

PATIENT
  Age: 85 Year
  Sex: Female

DRUGS (6)
  1. COVERSYL [Suspect]
     Active Substance: PERINDOPRIL
     Dosage: 2.5 MG, DAILY
     Route: 048
  2. ATARAX [Suspect]
     Active Substance: HYDROXYZINE\HYDROXYZINE HYDROCHLORIDE
     Dosage: 25 MG, DAILY
     Route: 048
  3. LASILIX FAIBLE [Suspect]
     Active Substance: FUROSEMIDE
     Dosage: 20 MG, DAILY
     Route: 048
  4. DOLIPRANE [Suspect]
     Active Substance: ACETAMINOPHEN
     Dosage: UNK
     Route: 048
  5. CORDARONE [Suspect]
     Active Substance: AMIODARONE HYDROCHLORIDE
     Dosage: 200 MG, UNK
     Route: 048
     Dates: end: 20160519
  6. GAVISCON [Suspect]
     Active Substance: ALUMINUM HYDROXIDE\MAGNESIUM CARBONATE
     Dosage: UNK
     Route: 048

REACTIONS (7)
  - Dyspnoea exertional [Unknown]
  - Asthenia [Unknown]
  - Palpitations [Unknown]
  - Fall [Unknown]
  - Tachyarrhythmia [Unknown]
  - Hyperthyroidism [Recovered/Resolved]
  - Orthopnoea [Unknown]

NARRATIVE: CASE EVENT DATE: 20160519
